FAERS Safety Report 8234580-5 (Version None)
Quarter: 2012Q1

REPORT INFORMATION
  Report Type: 
  Country: None (occurrence: None)
  Receive Date: 20120307
  Receipt Date: 20100723
  Transmission Date: 20120608
  Serious: Yes (Life-Threatening)
  Sender: FDA-Public Use
  Company Number: PHHY2010US47702

PATIENT
  Age: 45 Year
  Sex: Male
  Weight: 110.2 kg

DRUGS (4)
  1. GLIMEPIRIDE [Concomitant]
  2. SIMVASTATIN [Concomitant]
  3. AFINITOR [Suspect]
     Indication: METASTATIC RENAL CELL CARCINOMA
     Dosage: 10 MG, DAILY, ORAL
     Route: 048
     Dates: start: 20100108, end: 20100523
  4. LISINOPRIL [Concomitant]

REACTIONS (10)
  - DYSPHAGIA [None]
  - OEDEMA PERIPHERAL [None]
  - BLOOD CREATININE INCREASED [None]
  - OBSTRUCTIVE AIRWAYS DISORDER [None]
  - DYSPNOEA [None]
  - ANAPHYLACTIC REACTION [None]
  - SWELLING FACE [None]
  - LIP SWELLING [None]
  - PLATELET COUNT DECREASED [None]
  - HAEMOGLOBIN DECREASED [None]
